FAERS Safety Report 10671349 (Version 1)
Quarter: 2014Q4

REPORT INFORMATION
  Report Type: Spontaneous
  Country: US (occurrence: None)
  Receive Date: 20141219
  Receipt Date: 20141219
  Transmission Date: 20150529
  Serious: Yes (Life-Threatening, Hospitalization)
  Sender: FDA-Public Use
  Company Number: 1520845

PATIENT
  Age: 69 Year
  Sex: Male

DRUGS (3)
  1. PROPAFENONE. [Suspect]
     Active Substance: PROPAFENONE
     Indication: ATRIAL FIBRILLATION
     Route: 048
  2. MIRTAZAPINE. [Suspect]
     Active Substance: MIRTAZAPINE
     Indication: INSOMNIA
     Dosage: SINGLE DOSE
  3. PROPAFERNONE [Concomitant]

REACTIONS (9)
  - Drug interaction [None]
  - Bradycardia [None]
  - Seizure [None]
  - Atrial fibrillation [None]
  - Toxicity to various agents [None]
  - Hypotension [None]
  - Cardiotoxicity [None]
  - Bundle branch block right [None]
  - Neurotoxicity [None]
